FAERS Safety Report 7539971-3 (Version None)
Quarter: 2011Q2

REPORT INFORMATION
  Report Type: 
  Country: None (occurrence: None)
  Receive Date: 20110610
  Receipt Date: 20110527
  Transmission Date: 20111010
  Serious: Yes (Death)
  Sender: FDA-Public Use
  Company Number: DK-JNJFOC-20110405162

PATIENT
  Sex: Male
  Weight: 26 kg

DRUGS (9)
  1. REMICADE [Suspect]
     Indication: UVEITIS
     Dosage: STRENGTH 100 MG, INITIATED 5 MONTHS AGO
     Route: 042
  2. METHOTREXATE [Concomitant]
     Indication: UVEITIS
  3. XALATAN [Concomitant]
     Indication: GLAUCOMA
  4. COSOPT [Concomitant]
     Indication: GLAUCOMA
  5. MYDRIACYL [Concomitant]
     Indication: UVEITIS
  6. XALATAN [Concomitant]
     Indication: UVEITIS
  7. PREDNISOLONE [Concomitant]
     Indication: INTRAOCULAR PRESSURE INCREASED
     Dates: start: 20100801, end: 20101210
  8. COSOPT [Concomitant]
     Indication: UVEITIS
  9. PREDNISOLONE [Concomitant]
     Indication: UVEITIS
     Dates: start: 20100801, end: 20101210

REACTIONS (1)
  - PNEUMONIA HERPES VIRAL [None]
